FAERS Safety Report 7262899-3 (Version None)
Quarter: 2011Q1

REPORT INFORMATION
  Report Type: 
  Country: None (occurrence: None)
  Receive Date: 20110130
  Receipt Date: 20100907
  Transmission Date: 20110831
  Serious: Yes (Death, Other)
  Sender: FDA-Public Use
  Company Number: US-ABBOTT-10P-163-0668564-00

PATIENT
  Sex: Female

DRUGS (1)
  1. HUMIRA [Suspect]
     Indication: RHEUMATOID ARTHRITIS
     Dosage: 2-3 DOSES TOTAL
     Route: 058

REACTIONS (3)
  - POST PROCEDURAL INFECTION [None]
  - DEATH [None]
  - FOOT OPERATION [None]
